FAERS Safety Report 4389446-8 (Version None)
Quarter: 2004Q3

REPORT INFORMATION
  Report Type: 
  Country: None (occurrence: None)
  Receive Date: 20040702
  Receipt Date: 20040617
  Transmission Date: 20050211
  Serious: Yes (Hospitalization)
  Sender: FDA-Public Use
  Company Number: US-MERCK-0406USA01861

PATIENT
  Age: 73 Year
  Sex: Female

DRUGS (6)
  1. LOPID [Concomitant]
     Route: 065
  2. SKELAXIN [Concomitant]
     Route: 065
  3. ACIPHEX [Concomitant]
     Route: 065
  4. VIOXX [Suspect]
     Indication: OSTEOARTHRITIS
     Route: 048
     Dates: start: 20030301, end: 20030101
  5. VIOXX [Suspect]
     Route: 048
     Dates: start: 20030401, end: 20040601
  6. DIOVAN [Concomitant]
     Route: 065

REACTIONS (3)
  - CARDIAC FAILURE CONGESTIVE [None]
  - GASTRIC ULCER HAEMORRHAGE [None]
  - INTESTINAL OBSTRUCTION [None]
